FAERS Safety Report 4944933-6 (Version None)
Quarter: 2006Q1

REPORT INFORMATION
  Report Type: 
  Country: None (occurrence: None)
  Receive Date: 20060315
  Receipt Date: 20030929
  Transmission Date: 20060701
  Serious: Yes (Hospitalization, Disabling, Other)
  Sender: FDA-Public Use
  Company Number: US-MERCK-0603USA01049

PATIENT
  Age: 47 Year
  Sex: Female
  Weight: 82 kg

DRUGS (2)
  1. VIOXX [Suspect]
     Indication: ARTHRITIS
     Route: 048
     Dates: start: 20010201
  2. VIOXX [Suspect]
     Indication: PAIN
     Route: 048
     Dates: start: 20010201

REACTIONS (22)
  - ABDOMINAL PAIN UPPER [None]
  - ADJUSTMENT DISORDER [None]
  - ADVERSE EVENT [None]
  - ANXIETY DISORDER [None]
  - BLOOD PRESSURE INCREASED [None]
  - CHEST PAIN [None]
  - COMPLEX REGIONAL PAIN SYNDROME [None]
  - DIABETES MELLITUS [None]
  - DIZZINESS [None]
  - DUODENITIS [None]
  - EMOTIONAL DISTRESS [None]
  - GASTRIC POLYPS [None]
  - GASTRITIS [None]
  - GASTROOESOPHAGEAL REFLUX DISEASE [None]
  - HEADACHE [None]
  - HEPATIC CIRRHOSIS [None]
  - MAJOR DEPRESSION [None]
  - NAUSEA [None]
  - NEURODERMATITIS [None]
  - PANCREATITIS CHRONIC [None]
  - RADICULITIS LUMBOSACRAL [None]
  - RENAL CYST [None]
